FAERS Safety Report 9343184 (Version 1)
Quarter: 2013Q2

REPORT INFORMATION
  Report Type: Spontaneous
  Country: CN (occurrence: CN)
  Receive Date: 20130611
  Receipt Date: 20130611
  Transmission Date: 20140414
  Serious: Yes (Other)
  Sender: FDA-Public Use
  Company Number: CN-ASTRAZENECA-2013SE41662

PATIENT
  Age: 806 Month
  Sex: Male

DRUGS (2)
  1. SYMBICORT [Suspect]
     Indication: ASTHMA
     Dosage: 160/4.5 MCG, TWO TIMES A DAY
     Route: 055
     Dates: start: 20100101, end: 20121112
  2. THEOPHYLLINE [Concomitant]

REACTIONS (5)
  - Asthma [Unknown]
  - Tremor [Unknown]
  - Pruritus [Unknown]
  - Throat irritation [Unknown]
  - Drug dose omission [Unknown]
